FAERS Safety Report 8530064 (Version 2)
Quarter: 2012Q4

REPORT INFORMATION
  Report Type: 
  Country: CA (occurrence: CA)
  Receive Date: 20120425
  Receipt Date: 20121220
  Transmission Date: 20130627
  Serious: Yes (Other)
  Sender: FDA-Public Use
  Company Number: CA-GLAXOSMITHKLINE-A0973890A

PATIENT
  Sex: Female

DRUGS (7)
  1. TYKERB [Suspect]
     Indication: BREAST CANCER METASTATIC
     Dosage: 1250MG Per day
     Route: 048
     Dates: start: 20110617
  2. XELODA [Suspect]
     Indication: PRODUCT USED FOR UNKNOWN INDICATION
     Route: 065
  3. ZOFRAN [Concomitant]
  4. MAXERAN [Concomitant]
  5. LOMOTIL [Concomitant]
  6. SLOW K [Concomitant]
  7. B COMPLEX [Concomitant]

REACTIONS (4)
  - Palmar-plantar erythrodysaesthesia syndrome [Recovered/Resolved]
  - Skin fissures [Recovered/Resolved]
  - Blister [Recovered/Resolved]
  - Quality of life decreased [Unknown]
